FAERS Safety Report 5466588-7 (Version None)
Quarter: 2007Q3

REPORT INFORMATION
  Report Type: 
  Country: None (occurrence: None)
  Receive Date: 20070925
  Receipt Date: 20070914
  Transmission Date: 20080115
  Serious: Yes (Other)
  Sender: FDA-Public Use
  Company Number: PHHO2007BR07795

PATIENT
  Age: 43 Year
  Sex: Female
  Weight: 65 kg

DRUGS (10)
  1. ZELNORM [Suspect]
     Indication: IRRITABLE BOWEL SYNDROME
     Dosage: 6 MG, BID
     Route: 048
     Dates: start: 20070428
  2. AMITRIPTYLINE HCL [Concomitant]
     Dates: start: 20070728
  3. CLOXAZOLAM [Suspect]
  4. TRILEPTAL [Suspect]
     Indication: DEPRESSION
     Dosage: 600 MG, UNK
     Dates: start: 20070813
  5. RIVOTRIL [Concomitant]
  6. FLUOXETINE [Suspect]
  7. RANITIDINE [Concomitant]
  8. CYANOCOBALAMIN [Concomitant]
  9. CHOLINE [Concomitant]
  10. INOSITOL [Concomitant]

REACTIONS (11)
  - ANOREXIA [None]
  - BONE PAIN [None]
  - DIZZINESS [None]
  - DYSPNOEA [None]
  - HEADACHE [None]
  - INTESTINAL OBSTRUCTION [None]
  - LARYNGEAL OEDEMA [None]
  - MIGRAINE [None]
  - NAUSEA [None]
  - RHINITIS [None]
  - SOMNOLENCE [None]
